FAERS Safety Report 6859119-8 (Version None)
Quarter: 2010Q3

REPORT INFORMATION
  Report Type: 
  Country: None (occurrence: None)
  Receive Date: 20100719
  Receipt Date: 20080428
  Transmission Date: 20110219
  Serious: No
  Sender: FDA-Public Use
  Company Number: US-PFIZER INC-2008016847

PATIENT
  Sex: Female
  Weight: 72.6 kg

DRUGS (8)
  1. CHANTIX [Suspect]
     Indication: SMOKING CESSATION THERAPY
     Route: 048
     Dates: start: 20070601
  2. ACETYLSALICYLIC ACID [Concomitant]
  3. ACCOLATE [Concomitant]
  4. LIPITOR [Concomitant]
  5. VALSARTAN [Concomitant]
  6. PLAVIX [Concomitant]
  7. CITALOPRAM HYDROBROMIDE [Concomitant]
  8. TRICOR [Concomitant]

REACTIONS (2)
  - DRUG INEFFECTIVE [None]
  - NAUSEA [None]
